FAERS Safety Report 6609287-8 (Version None)
Quarter: 2010Q1

REPORT INFORMATION
  Report Type: 
  Country: None (occurrence: None)
  Receive Date: 20100224
  Receipt Date: 20100217
  Transmission Date: 20100710
  Serious: Yes (Hospitalization)
  Sender: FDA-Public Use
  Company Number: 2010SP009710

PATIENT
  Age: 78 Year
  Sex: Female
  Weight: 51.2565 kg

DRUGS (18)
  1. TEMOZOLOMIDE [Suspect]
     Indication: GLIOBLASTOMA MULTIFORME
     Dosage: 215 MG; QD; PO
     Route: 048
     Dates: start: 20100202, end: 20100204
  2. TEMOZOLOMIDE [Suspect]
  3. AMBIEN (CON.) [Concomitant]
  4. COLACE (CON.) [Concomitant]
  5. DECADRON (CON.) [Concomitant]
  6. MEGACE (CON.) [Concomitant]
  7. OMEPRAZOLE (CON.) [Concomitant]
  8. ONDANSETRON HCL (CON.) [Concomitant]
  9. SENOKOT (CON.) [Concomitant]
  10. TRAZODONE (CON.) [Concomitant]
  11. BACTRIM DS (CON.) [Concomitant]
  12. ZOFRAN (CON.) [Concomitant]
  13. DALTEPARIN (CON.) [Concomitant]
  14. MEGESTROL ACETATE (CON.) [Concomitant]
  15. CEFTRIAXONE (CON.) [Concomitant]
  16. VANCOMYCIN HCL (CON.) [Concomitant]
  17. METRONIDAZOLE (CON.) [Concomitant]
  18. LEVOFLOXACIN (CON.) [Concomitant]

REACTIONS (7)
  - CONDITION AGGRAVATED [None]
  - FAILURE TO THRIVE [None]
  - HYPOPHAGIA [None]
  - HYPOTENSION [None]
  - NAUSEA [None]
  - SEPSIS [None]
  - VOMITING [None]
